FAERS Safety Report 13506426 (Version 1)
Quarter: 2017Q2

REPORT INFORMATION
  Report Type: Spontaneous
  Country: US (occurrence: US)
  Receive Date: 20170502
  Receipt Date: 20170502
  Transmission Date: 20170830
  Serious: No
  Sender: FDA-Public Use
  Company Number: US-ROCHE-1283727

PATIENT
  Sex: Female
  Weight: 46.31 kg

DRUGS (6)
  1. AVASTIN [Suspect]
     Active Substance: BEVACIZUMAB
     Indication: NEOVASCULAR AGE-RELATED MACULAR DEGENERATION
  2. PRIMIDONE. [Concomitant]
     Active Substance: PRIMIDONE
     Dosage: HALF IA 1 DAY
     Route: 065
  3. SYNTHROID [Concomitant]
     Active Substance: LEVOTHYROXINE SODIUM
  4. AVASTIN [Suspect]
     Active Substance: BEVACIZUMAB
     Indication: OFF LABEL USE
  5. AVASTIN [Suspect]
     Active Substance: BEVACIZUMAB
     Indication: MACULAR DEGENERATION
     Dosage: PEDIATRIC DOSES
     Route: 031
  6. ASACOL [Concomitant]
     Active Substance: MESALAMINE
     Indication: CROHN^S DISEASE

REACTIONS (6)
  - Faeces discoloured [Recovered/Resolved]
  - Melaena [Recovered/Resolved]
  - Blood pressure increased [Recovered/Resolved]
  - Irritable bowel syndrome [Recovered/Resolved]
  - Anxiety [Not Recovered/Not Resolved]
  - Eye pain [Unknown]
